FAERS Safety Report 9948419 (Version 1)
Quarter: 2014Q1

REPORT INFORMATION
  Report Type: Report from Study
  Country: US (occurrence: US)
  Receive Date: 20140304
  Receipt Date: 20140304
  Transmission Date: 20141002
  Serious: Yes (Other)
  Sender: FDA-Public Use
  Company Number: US-ROCHE-1345248

PATIENT
  Sex: Female

DRUGS (5)
  1. LUCENTIS [Suspect]
     Indication: DIABETIC RETINAL OEDEMA
     Dosage: OD
     Route: 050
     Dates: start: 20110721
  2. LUCENTIS [Suspect]
     Indication: DIABETIC RETINOPATHY
     Dosage: OD
     Route: 050
     Dates: start: 20110818
  3. AVASTIN [Suspect]
     Indication: DIABETIC RETINAL OEDEMA
     Route: 050
  4. AMLODIPINE BESYLATE [Concomitant]
     Route: 065
     Dates: start: 20121206
  5. LIPITOR [Concomitant]
     Route: 065
     Dates: start: 20121206

REACTIONS (13)
  - Cystoid macular oedema [Unknown]
  - Meibomian gland dysfunction [Unknown]
  - Eye pruritus [Unknown]
  - Dyspnoea [Unknown]
  - Asthenia [Unknown]
  - Urinary tract infection [Unknown]
  - Vitreous floaters [Unknown]
  - Blood glucose increased [Unknown]
  - Pupillary reflex impaired [Unknown]
  - Retinal haemorrhage [Unknown]
  - Vitreous detachment [Unknown]
  - Off label use [Unknown]
  - Prescribed overdose [Unknown]
